FAERS Safety Report 3756160 (Version 3)
Quarter: 2013Q3

REPORT INFORMATION
  Report Type: Spontaneous
  Country: JP (occurrence: JP)
  Receive Date: 20020123
  Receipt Date: 20130701
  Transmission Date: 20140515
  Serious: Yes (Death, Life-Threatening)
  Sender: FDA-Public Use
  Company Number: PHBS2001JP11044

PATIENT
  Age: 60 Year
  Sex: Male

DRUGS (4)
  1. LAMISIL [Suspect]
     Indication: ONYCHOMYCOSIS
     Dosage: 125 MG, DAILY
     Route: 048
     Dates: start: 20010831, end: 20011016
  2. TAKEPRON [Concomitant]
     Dosage: 15 MG, UNK
     Route: 048
     Dates: start: 20010914, end: 20011024
  3. PROLMON [Concomitant]
     Dosage: 60 MG, UNK
     Route: 048
     Dates: start: 20010711, end: 20011024
  4. URSOSAN [Concomitant]
     Dosage: 150 MG, UNK
     Route: 048
     Dates: start: 20010711, end: 20011024

REACTIONS (9)
  - Hepatic cirrhosis [Fatal]
  - Hepatic failure [Recovering/Resolving]
  - Ascites [Recovered/Resolved]
  - Pyrexia [Unknown]
  - Jaundice [Not Recovered/Not Resolved]
  - Hypoalbuminaemia [Not Recovered/Not Resolved]
  - Oedema peripheral [Recovered/Resolved]
  - Abdominal distension [Unknown]
  - Blood pressure decreased [Unknown]
